FAERS Safety Report 6128525-1 (Version None)
Quarter: 2009Q1

REPORT INFORMATION
  Report Type: 
  Country: None (occurrence: None)
  Receive Date: 20090323
  Receipt Date: 20090309
  Transmission Date: 20090719
  Serious: Yes (Other)
  Sender: FDA-Public Use
  Company Number: JP-19130

PATIENT
  Sex: Female
  Weight: 78 kg

DRUGS (2)
  1. NIZORAL [Suspect]
     Indication: FUNGAL INFECTION
     Route: 048
  2. FUNGIZONE [Suspect]
     Indication: FUNGAL INFECTION
     Dosage: THERAPY DURATION: 3
     Route: 048

REACTIONS (2)
  - ABORTION SPONTANEOUS [None]
  - DRUG EXPOSURE DURING PREGNANCY [None]
